FAERS Safety Report 8863679 (Version 1)
Quarter: 2012Q4

REPORT INFORMATION
  Report Type: 
  Country: US (occurrence: US)
  Receive Date: 20121024
  Receipt Date: 20121024
  Transmission Date: 20130627
  Serious: No
  Sender: FDA-Public Use
  Company Number: US-AMGEN-USASP2011063908

PATIENT
  Sex: Female

DRUGS (10)
  1. ENBREL [Suspect]
     Indication: PRODUCT USED FOR UNKNOWN INDICATION
     Dosage: 50 mg, qwk
  2. BYSTOLIC [Concomitant]
     Dosage: 10 mg, UNK
  3. SINGULAIR [Concomitant]
     Dosage: 10 mg, UNK
  4. PROTONIX [Concomitant]
     Dosage: 20 mg, UNK
  5. VITAMIN D /00107901/ [Concomitant]
     Dosage: UNK
  6. FOLIC ACID [Concomitant]
     Dosage: 20 mg, UNK
  7. METHOTREXATE [Concomitant]
     Dosage: 2.5 mg, UNK
  8. VIACTIV                            /00751501/ [Concomitant]
  9. LEVOTHYROXIN [Concomitant]
  10. CRESTOR [Concomitant]
     Dosage: 10 mg, UNK

REACTIONS (1)
  - Haemoglobin decreased [Unknown]
